FAERS Safety Report 21852058 (Version 5)
Quarter: 2024Q1

REPORT INFORMATION
  Report Type: Spontaneous
  Country: US (occurrence: US)
  Receive Date: 20230112
  Receipt Date: 20240319
  Transmission Date: 20240409
  Serious: Yes (Hospitalization, Other)
  Sender: FDA-Public Use
  Company Number: US-BRISTOL-MYERS SQUIBB COMPANY-2023-005009

PATIENT
  Age: 73 Year
  Sex: Male
  Weight: 92.98 kg

DRUGS (2)
  1. POMALYST [Suspect]
     Active Substance: POMALIDOMIDE
     Indication: Plasma cell myeloma
     Dosage: FREQUENCY - QD?FREQUENCY- 21D OF 27 DAYS.
     Route: 048
  2. POMALYST [Suspect]
     Active Substance: POMALIDOMIDE
     Dosage: FREQUENCY 21
     Dates: start: 20220709

REACTIONS (2)
  - Pneumonia [Unknown]
  - Constipation [Not Recovered/Not Resolved]
